FAERS Safety Report 11163259 (Version 1)
Quarter: 2015Q2

REPORT INFORMATION
  Report Type: Other
  Country: DE (occurrence: DE)
  Receive Date: 20150604
  Receipt Date: 20150604
  Transmission Date: 20150821
  Serious: Yes (Death, Other)
  Sender: FDA-Public Use
  Company Number: DE-MYLANLABS-2015M1017789

PATIENT

DRUGS (1)
  1. AZATHIOPRINE. [Suspect]
     Active Substance: AZATHIOPRINE
     Indication: CROHN^S DISEASE
     Dosage: 150 MG, UNK
     Route: 048
     Dates: start: 200705, end: 201412

REACTIONS (5)
  - Chronic lymphocytic leukaemia [Fatal]
  - B-cell lymphoma [Fatal]
  - Central nervous system lymphoma [Fatal]
  - Seizure [Unknown]
  - Status epilepticus [Unknown]

NARRATIVE: CASE EVENT DATE: 201412
